FAERS Safety Report 18023560 (Version 1)
Quarter: 2020Q3

REPORT INFORMATION
  Report Type: Spontaneous
  Country: US (occurrence: US)
  Receive Date: 20200715
  Receipt Date: 20200715
  Transmission Date: 20201103
  Serious: No
  Sender: FDA-Public Use
  Company Number: US-BRISTOL-MYERS SQUIBB COMPANY-BMS-2020-056015

PATIENT
  Age: 69 Year
  Sex: Male
  Weight: 61.23 kg

DRUGS (2)
  1. ELIQUIS [Suspect]
     Active Substance: APIXABAN
     Indication: PULMONARY EMBOLISM
     Dosage: 5 MG, TWO PILLS TWICE A DAY FOR 7 DAYS
     Route: 048
     Dates: start: 20200630
  2. ELIQUIS [Suspect]
     Active Substance: APIXABAN
     Dosage: TWO PILLS FOR THIS MORNINGS DOSAGE
     Route: 048
     Dates: start: 20200713

REACTIONS (1)
  - Incorrect dose administered [Unknown]

NARRATIVE: CASE EVENT DATE: 20200713
